FAERS Safety Report 25364664 (Version 2)
Quarter: 2025Q2

REPORT INFORMATION
  Report Type: Spontaneous
  Country: US (occurrence: US)
  Receive Date: 20250527
  Receipt Date: 20250613
  Transmission Date: 20250717
  Serious: Yes (Other)
  Sender: PARATEK PHARMACEUTICALS
  Company Number: US-PARATEK PHARMACEUTICALS, INC.-2025PTK00631

PATIENT
  Age: 76 Year
  Sex: Female
  Weight: 52.8 kg

DRUGS (21)
  1. NUZYRA [Suspect]
     Active Substance: OMADACYCLINE
     Indication: Mycobacterium abscessus infection
     Dosage: 300 MG, 1X/DAY (DAILY AT BEDTIME)
     Route: 048
     Dates: start: 20240807, end: 20240830
  2. NUZYRA [Suspect]
     Active Substance: OMADACYCLINE
     Indication: Pneumonia bacterial
     Dosage: 300 MG, 1X/DAY
     Route: 048
     Dates: start: 20240909, end: 20241004
  3. NUZYRA [Suspect]
     Active Substance: OMADACYCLINE
     Indication: Pathogen resistance
     Dosage: 150 MG, 1X/DAY (DAILY AT BEDTIME)
     Route: 048
     Dates: start: 20250121, end: 20250211
  4. AMIKACIN [Suspect]
     Active Substance: AMIKACIN
     Indication: Mycobacterium abscessus infection
     Dosage: UNK, 3X/WEEK
     Route: 042
     Dates: start: 20240807, end: 20240923
  5. AMIKACIN [Suspect]
     Active Substance: AMIKACIN
     Indication: Pneumonia bacterial
  6. AMIKACIN [Suspect]
     Active Substance: AMIKACIN
     Indication: Pathogen resistance
  7. IMIPENEM [Concomitant]
     Active Substance: IMIPENEM
     Dosage: 500 MG, 2X/DAY
     Route: 042
     Dates: start: 20240807, end: 20241023
  8. IMIPENEM [Concomitant]
     Active Substance: IMIPENEM
     Dosage: 1000 MG, 2X/DAY
     Route: 042
     Dates: start: 20250308, end: 20250326
  9. CLOFAZIMINE [Concomitant]
     Active Substance: CLOFAZIMINE
     Dosage: 100 MG, 1X/DAY
     Dates: start: 20240807, end: 20241127
  10. CLOFAZIMINE [Concomitant]
     Active Substance: CLOFAZIMINE
     Dosage: 100 MG, 1X/DAY
     Dates: start: 202412
  11. LINEZOLID [Concomitant]
     Active Substance: LINEZOLID
     Dosage: 600 MG, 1X/DAY
     Dates: start: 20241014, end: 20251024
  12. LINEZOLID [Concomitant]
     Active Substance: LINEZOLID
     Dosage: 600 MG, 3X/WEEK
     Dates: start: 20241025, end: 20241127
  13. AMIKACIN SULFATE [Concomitant]
     Active Substance: AMIKACIN SULFATE
     Dosage: 590 MG, 1X/DAY
     Dates: start: 20241025, end: 20241127
  14. AMIKACIN SULFATE [Concomitant]
     Active Substance: AMIKACIN SULFATE
     Dosage: 590 MG, 1X/DAY
     Dates: start: 202412
  15. TEDIZOLID [Concomitant]
     Active Substance: TEDIZOLID
     Dosage: 200 MG, 1X/DAY
     Dates: start: 202412, end: 20250121
  16. CEFTAROLINE [Concomitant]
     Active Substance: CEFTAROLINE
     Dosage: 600 MG, 2X/DAY
     Route: 042
     Dates: start: 20250308, end: 20250326
  17. ATORVASTATIN [Concomitant]
     Active Substance: ATORVASTATIN
  18. ESTRADIOL [Concomitant]
     Active Substance: ESTRADIOL
  19. HYDROXYZINE [Concomitant]
     Active Substance: HYDROXYZINE HYDROCHLORIDE
  20. SODIUM CHLORIDE [Concomitant]
     Active Substance: SODIUM CHLORIDE
  21. VITAMIN B6 [Concomitant]
     Active Substance: PYRIDOXINE HYDROCHLORIDE

REACTIONS (5)
  - Drug-induced liver injury [Recovered/Resolved]
  - Deafness bilateral [Unknown]
  - Nausea [Unknown]
  - Off label use [Recovered/Resolved]
  - Incorrect product administration duration [Recovered/Resolved]

NARRATIVE: CASE EVENT DATE: 20240809
